FAERS Safety Report 4377040-4 (Version None)
Quarter: 2004Q2

REPORT INFORMATION
  Report Type: 
  Country: None (occurrence: None)
  Receive Date: 20040614
  Receipt Date: 20040604
  Transmission Date: 20050107
  Serious: Yes (Hospitalization)
  Sender: FDA-Public Use
  Company Number: CN-GLAXOSMITHKLINE-B0335217A

PATIENT
  Age: 64 Year
  Sex: Male

DRUGS (1)
  1. HEPTODIN [Suspect]
     Route: 048
     Dates: start: 20020515

REACTIONS (6)
  - ANTI-HBE ANTIBODY POSITIVE [None]
  - ASCITES [None]
  - DECREASED APPETITE [None]
  - HEPATIC CIRRHOSIS [None]
  - HEPATITIS B VIRUS [None]
  - JAUNDICE [None]
